FAERS Safety Report 12159448 (Version 1)
Quarter: 2016Q1

REPORT INFORMATION
  Report Type: Spontaneous
  Country: US (occurrence: None)
  Receive Date: 20160307
  Receipt Date: 20160307
  Transmission Date: 20160526
  Serious: No
  Sender: FDA-Public Use
  Company Number: None

PATIENT
  Age: 42 Year
  Sex: Female

DRUGS (1)
  1. COPAXONE [Suspect]
     Active Substance: GLATIRAMER ACETATE
     Route: 058
     Dates: start: 20151217

REACTIONS (6)
  - Injection site pruritus [None]
  - Injection site induration [None]
  - Injection site nodule [None]
  - Injection site erythema [None]
  - Injection site warmth [None]
  - Injection site vesicles [None]

NARRATIVE: CASE EVENT DATE: 20151217
